FAERS Safety Report 9629417 (Version 1)
Quarter: 2013Q4

REPORT INFORMATION
  Report Type: Spontaneous
  Country: US (occurrence: US)
  Receive Date: 20131017
  Receipt Date: 20131017
  Transmission Date: 20140711
  Serious: No
  Sender: FDA-Public Use
  Company Number: US-ASTRAZENECA-2013SE55518

PATIENT
  Age: 81 Year
  Sex: Male
  Weight: 72.6 kg

DRUGS (3)
  1. CRESTOR [Suspect]
     Indication: HYPERTENSION
     Route: 048
  2. LYRICA [Suspect]
     Indication: FACIAL NEURALGIA
     Route: 065
     Dates: start: 2013
  3. CARBAMAZEPINE [Concomitant]
     Indication: FACIAL NEURALGIA

REACTIONS (4)
  - Anaemia [Unknown]
  - Fatigue [Unknown]
  - Asthenia [Unknown]
  - Off label use [Unknown]
